FAERS Safety Report 18898036 (Version 1)
Quarter: 2021Q1

REPORT INFORMATION
  Report Type: Spontaneous
  Country: US (occurrence: US)
  Receive Date: 20210216
  Receipt Date: 20210216
  Transmission Date: 20210420
  Serious: No
  Sender: FDA-Public Use
  Company Number: US-CELLTRION INC.-2021US001075

PATIENT

DRUGS (19)
  1. PRILOSEC [Concomitant]
     Active Substance: OMEPRAZOLE MAGNESIUM
     Dosage: 20 MG, DAILY
     Route: 048
  2. CRESTOR [Concomitant]
     Active Substance: ROSUVASTATIN CALCIUM
     Dosage: 10 MG, DAILY
     Route: 048
  3. TYLENOL EXTRA STRENGTH [Concomitant]
     Active Substance: ACETAMINOPHEN
     Dosage: 1000 MG, PRN
     Route: 048
  4. TRUXIMA [Suspect]
     Active Substance: RITUXIMAB-ABBS
     Dosage: 1100 MG, WEEKLY
     Route: 042
     Dates: start: 20210204
  5. VITAMIN D3 [Concomitant]
     Active Substance: CHOLECALCIFEROL
     Dosage: 2000 UNITS DAILY
     Route: 048
  6. ELIQUIS [Concomitant]
     Active Substance: APIXABAN
     Indication: ANTICOAGULANT THERAPY
     Dosage: 1 TABLET (2.5 MG) 2 TIMES A DAY V
     Route: 048
  7. HUMALOG [Concomitant]
     Active Substance: INSULIN LISPRO
     Dosage: INJECT UNDER SKIN
  8. FOLVITE [FOLIC ACID] [Concomitant]
     Dosage: 1 TABLET (1000 MCG) DAILY
     Route: 048
  9. TRUXIMA [Suspect]
     Active Substance: RITUXIMAB-ABBS
     Indication: ANAEMIA
     Dosage: 1100 MG, WEEKLY
     Route: 042
     Dates: start: 20210121
  10. PREDNISOLONE. [Concomitant]
     Active Substance: PREDNISOLONE
     Dosage: 20 MG, QD
  11. GLUCOPHAGE [Concomitant]
     Active Substance: METFORMIN HYDROCHLORIDE
     Dosage: 1 TABLET (500 MG) DAILY WITH BREAKFAST
     Route: 048
  12. INSULIN [Concomitant]
     Active Substance: INSULIN NOS
     Dosage: SYRINGE ULTRA?FINE 0.3 ML 31 GAUGE X 5/16 SYRINGE AS DIRECTED
  13. TRUXIMA [Suspect]
     Active Substance: RITUXIMAB-ABBS
     Dosage: 1100 MG, WEEKLY
     Route: 042
     Dates: start: 20210128
  14. ASTELIN [Concomitant]
     Active Substance: AZELASTINE HYDROCHLORIDE
     Dosage: 2 SPRAYS INTO EACH NOSTRIL DAILY
  15. DEMEROL [Concomitant]
     Active Substance: MEPERIDINE HYDROCHLORIDE
     Indication: CHILLS
     Dosage: 1/2 TABLET AS NEEDED
  16. DELTASONE [PREDNISOLONE] [Concomitant]
     Active Substance: PREDNISOLONE
     Dosage: 40 MG, BID
     Route: 048
  17. NEBUPENT [Concomitant]
     Active Substance: PENTAMIDINE ISETHIONATE
     Dosage: 300 MG, EVERY 30 DAYS
  18. TRUXIMA [Suspect]
     Active Substance: RITUXIMAB-ABBS
     Indication: HAEMOLYTIC ANAEMIA
     Dosage: 1100 MG, WEEKLY
     Route: 042
     Dates: start: 20210114
  19. LOTENSIN [Concomitant]
     Active Substance: BENAZEPRIL HYDROCHLORIDE
     Dosage: 10 MG, DAILY
     Route: 048

REACTIONS (1)
  - Off label use [Unknown]
